FAERS Safety Report 18364055 (Version 3)
Quarter: 2021Q2

REPORT INFORMATION
  Report Type: Spontaneous
  Country: US (occurrence: US)
  Receive Date: 20201009
  Receipt Date: 20210412
  Transmission Date: 20210717
  Serious: Yes (Other)
  Sender: FDA-Public Use
  Company Number: US-SA-2020SA276887

PATIENT
  Age: 53 Year
  Sex: Male

DRUGS (1)
  1. ZANTAC [Suspect]
     Active Substance: RANITIDINE HYDROCHLORIDE
     Indication: GASTROOESOPHAGEAL REFLUX DISEASE
     Dosage: 150 MG, QD
     Dates: start: 201201, end: 201801

REACTIONS (1)
  - Prostate cancer stage II [Unknown]

NARRATIVE: CASE EVENT DATE: 20161201
